FAERS Safety Report 4589523-2 (Version None)
Quarter: 2005Q1

REPORT INFORMATION
  Report Type: 
  Country: None (occurrence: None)
  Receive Date: 20050216
  Receipt Date: 20050131
  Transmission Date: 20050727
  Serious: Yes (Other)
  Sender: FDA-Public Use
  Company Number: US_0502111673

PATIENT
  Age: 47 Year
  Sex: Male

DRUGS (1)
  1. ZYPREXA [Suspect]
     Indication: SCHIZOPHRENIA
     Dates: start: 19960601

REACTIONS (7)
  - BUNDLE BRANCH BLOCK [None]
  - DIABETES MELLITUS [None]
  - EXTRAPYRAMIDAL DISORDER [None]
  - HYPERTENSION [None]
  - MYOCARDIAL INFARCTION [None]
  - PANCREATITIS [None]
  - WEIGHT INCREASED [None]
